FAERS Safety Report 13247992 (Version 7)
Quarter: 2018Q2

REPORT INFORMATION
  Report Type: Report from Study
  Country: US (occurrence: US)
  Receive Date: 20170217
  Receipt Date: 20180618
  Transmission Date: 20180711
  Serious: Yes (Other)
  Sender: FDA-Public Use
  Company Number: PHEH2017US004920

PATIENT
  Age: 51 Year
  Sex: Female
  Weight: 79.37 kg

DRUGS (11)
  1. OXCARBAZEPINE. [Concomitant]
     Active Substance: OXCARBAZEPINE
     Indication: GENERALISED TONIC-CLONIC SEIZURE
     Route: 065
  2. COQ10 [Concomitant]
     Active Substance: UBIDECARENONE
     Indication: PRODUCT USED FOR UNKNOWN INDICATION
     Route: 065
  3. MULTI VITAMIN [Concomitant]
     Active Substance: VITAMINS
     Indication: PRODUCT USED FOR UNKNOWN INDICATION
     Route: 065
  4. GILENYA [Suspect]
     Active Substance: FINGOLIMOD HYDROCHLORIDE
     Indication: RELAPSING-REMITTING MULTIPLE SCLEROSIS
     Dosage: 0.5 MG, QD
     Route: 048
     Dates: start: 20170118
  5. PROBIOTIC [Concomitant]
     Active Substance: PROBIOTICS NOS
     Indication: PRODUCT USED FOR UNKNOWN INDICATION
     Route: 065
  6. VITAMIN D3 [Concomitant]
     Active Substance: CHOLECALCIFEROL
     Indication: PRODUCT USED FOR UNKNOWN INDICATION
     Route: 065
  7. SYNTHROID [Concomitant]
     Active Substance: LEVOTHYROXINE SODIUM
     Indication: PRODUCT USED FOR UNKNOWN INDICATION
     Route: 065
  8. SAXENDA [Concomitant]
     Active Substance: LIRAGLUTIDE
     Indication: PRODUCT USED FOR UNKNOWN INDICATION
     Route: 065
  9. GILENYA [Suspect]
     Active Substance: FINGOLIMOD HYDROCHLORIDE
     Dosage: 0.5 MG, QD
     Route: 048
     Dates: start: 20170215
  10. DEPAKOTE [Suspect]
     Active Substance: DIVALPROEX SODIUM
     Indication: PETIT MAL EPILEPSY
     Route: 065
  11. LYRICA [Concomitant]
     Active Substance: PREGABALIN
     Indication: NEURALGIA
     Route: 065

REACTIONS (20)
  - Liver disorder [Recovered/Resolved]
  - Vertigo [Not Recovered/Not Resolved]
  - Toxicity to various agents [Recovered/Resolved]
  - Grip strength decreased [Not Recovered/Not Resolved]
  - Fatigue [Recovering/Resolving]
  - Ammonia increased [Recovering/Resolving]
  - Infection [Recovered/Resolved]
  - Visual impairment [Unknown]
  - Uhthoff^s phenomenon [Recovering/Resolving]
  - Feeling abnormal [Recovered/Resolved]
  - Aphasia [Recovering/Resolving]
  - Bradyphrenia [Not Recovered/Not Resolved]
  - Renal disorder [Recovered/Resolved]
  - Multiple sclerosis relapse [Not Recovered/Not Resolved]
  - Amnesia [Recovering/Resolving]
  - Dysphagia [Unknown]
  - Central nervous system infection [Unknown]
  - Cerebral disorder [Unknown]
  - Precancerous skin lesion [Recovered/Resolved]
  - Dysarthria [Recovering/Resolving]

NARRATIVE: CASE EVENT DATE: 2017
